FAERS Safety Report 10177831 (Version 2)
Quarter: 2014Q2

REPORT INFORMATION
  Report Type: Spontaneous
  Country: US (occurrence: US)
  Receive Date: 20140516
  Receipt Date: 20140516
  Transmission Date: 20141212
  Serious: Yes (Hospitalization, Other)
  Sender: FDA-Public Use
  Company Number: US-PFIZER INC-2014124310

PATIENT
  Age: 83 Year
  Sex: Female

DRUGS (5)
  1. SERTRALINE HCL [Suspect]
     Indication: AGGRESSION
     Dosage: 50 MG, DAILY
     Dates: start: 199802
  2. SERTRALINE HCL [Interacting]
     Dosage: 200 MG, DAILY
     Dates: start: 199803, end: 19980710
  3. DONEPEZIL HCL [Interacting]
     Dosage: 5 MG, DAILY
     Dates: start: 19980626, end: 19980706
  4. DILTIAZEM HCL [Suspect]
     Dosage: UNK
  5. PHENOBARBITAL [Interacting]
     Dosage: UNK

REACTIONS (6)
  - Drug interaction [Recovered/Resolved]
  - Confusional state [Recovered/Resolved]
  - Dehydration [Recovered/Resolved]
  - Hepatotoxicity [Recovered/Resolved]
  - Jaundice cholestatic [Recovered/Resolved]
  - Hepatitis [Recovered/Resolved]
